FAERS Safety Report 14281547 (Version 12)
Quarter: 2020Q2

REPORT INFORMATION
  Report Type: Spontaneous
  Country: US (occurrence: US)
  Receive Date: 20171213
  Receipt Date: 20200413
  Transmission Date: 20200713
  Serious: Yes (Hospitalization, Other)
  Sender: FDA-Public Use
  Company Number: US-BRISTOL-MYERS SQUIBB COMPANY-BMS-2017-109110

PATIENT
  Sex: Female
  Weight: 58.96 kg

DRUGS (1)
  1. ORENCIA [Suspect]
     Active Substance: ABATACEPT
     Indication: RHEUMATOID ARTHRITIS
     Dosage: 125 MILLIGRAM, QWK
     Route: 058
     Dates: start: 201707

REACTIONS (16)
  - Nausea [Recovering/Resolving]
  - Inflammation [Unknown]
  - Paraesthesia [Unknown]
  - Pyrexia [Recovering/Resolving]
  - Intestinal haemorrhage [Unknown]
  - Viral infection [Unknown]
  - Cardiac failure congestive [Unknown]
  - Infection [Unknown]
  - Diarrhoea [Recovering/Resolving]
  - Blood potassium decreased [Unknown]
  - Arterial disorder [Unknown]
  - Drug ineffective [Unknown]
  - Musculoskeletal pain [Unknown]
  - Malaise [Unknown]
  - Condition aggravated [Recovering/Resolving]
  - Pain [Unknown]
